FAERS Safety Report 8501524-8 (Version None)
Quarter: 2012Q3

REPORT INFORMATION
  Report Type: 
  Country: None (occurrence: None)
  Receive Date: 20120710
  Receipt Date: 20120703
  Transmission Date: 20120928
  Serious: Yes (Other)
  Sender: FDA-Public Use
  Company Number: BR-PFIZER INC-2012160145

PATIENT
  Age: 74 Year
  Sex: Female

DRUGS (4)
  1. XALATAN [Suspect]
     Indication: INTRAOCULAR PRESSURE TEST ABNORMAL
     Dosage: 1.5 UG (ONE DROP IN THE RIGHT EYE), 1X/DAY
     Route: 047
     Dates: start: 20100101
  2. ZYMAR [Concomitant]
     Indication: ANTIBIOTIC THERAPY
     Dosage: UNK, 5X/DAY
     Dates: start: 20120703
  3. REFRESH [Concomitant]
     Indication: DRY EYE
     Dosage: 3-4X/DAY
  4. EPITEGEL [Concomitant]
     Indication: SUPERFICIAL INJURY OF EYE
     Dosage: UNK

REACTIONS (3)
  - BLINDNESS [None]
  - CORNEAL DEGENERATION [None]
  - BLINDNESS UNILATERAL [None]
